FAERS Safety Report 25930411 (Version 1)
Quarter: 2025Q4

REPORT INFORMATION
  Report Type: Spontaneous
  Country: US (occurrence: US)
  Receive Date: 20251016
  Receipt Date: 20251016
  Transmission Date: 20260118
  Serious: No
  Sender: ROCHE
  Company Number: US-ROCHE-10000407154

PATIENT
  Sex: Female

DRUGS (9)
  1. XOLAIR PFS [Suspect]
     Active Substance: OMALIZUMAB
     Indication: Idiopathic urticaria
     Route: 058
  2. ZYRTEC ALLER CAP [Concomitant]
  3. CLOBETASOL [Concomitant]
     Active Substance: CLOBETASOL
     Dosage: 1 POW
  4. CYCLOSPORINE EMU 0.05 % [Concomitant]
  5. EFFEXOR XR CP2 [Concomitant]
  6. HYDROXYZINE [Concomitant]
     Active Substance: HYDROXYZINE HYDROCHLORIDE
     Dosage: POW
  7. METFORMIN HC POW [Concomitant]
  8. MONTELUKAST POW [Concomitant]
  9. PREMARIN TAB [Concomitant]

REACTIONS (1)
  - Injection site pain [Unknown]
